FAERS Safety Report 9196254 (Version 1)
Quarter: 2013Q1

REPORT INFORMATION
  Report Type: Spontaneous
  Country: CN (occurrence: CN)
  Receive Date: 20130328
  Receipt Date: 20130328
  Transmission Date: 20140127
  Serious: Yes (Other)
  Sender: FDA-Public Use
  Company Number: CN-JNJFOC-20130306420

PATIENT
  Age: 39 Year
  Sex: Male

DRUGS (5)
  1. TOPAMAX [Suspect]
     Indication: EPILEPSY
     Route: 048
     Dates: start: 20130319
  2. TOPAMAX [Suspect]
     Indication: EPILEPSY
     Route: 048
     Dates: start: 20130307, end: 20130319
  3. TOPAMAX [Suspect]
     Indication: EPILEPSY
     Route: 048
     Dates: start: 201302, end: 20130307
  4. TOPAMAX [Suspect]
     Indication: EPILEPSY
     Route: 048
     Dates: start: 201212, end: 201302
  5. CARBAMAZEPINE [Concomitant]
     Indication: EPILEPSY
     Route: 048

REACTIONS (15)
  - Hallucination [Recovered/Resolved]
  - Petit mal epilepsy [Unknown]
  - Suicidal ideation [Not Recovered/Not Resolved]
  - Treatment noncompliance [Unknown]
  - Sensory loss [Recovered/Resolved]
  - Thinking abnormal [Not Recovered/Not Resolved]
  - Agitation [Recovered/Resolved]
  - Diarrhoea [Recovered/Resolved]
  - Insomnia [Recovered/Resolved]
  - Muscle contracture [Recovered/Resolved]
  - Feeling abnormal [Not Recovered/Not Resolved]
  - Musculoskeletal stiffness [Recovered/Resolved]
  - Slow speech [Recovered/Resolved]
  - Expressive language disorder [Not Recovered/Not Resolved]
  - Impaired work ability [Not Recovered/Not Resolved]
